FAERS Safety Report 13153826 (Version 3)
Quarter: 2017Q1

REPORT INFORMATION
  Report Type: Spontaneous
  Country: US (occurrence: US)
  Receive Date: 20170126
  Receipt Date: 20170306
  Transmission Date: 20170428
  Serious: Yes (Other)
  Sender: FDA-Public Use
  Company Number: US-NOVOPROD-528039

PATIENT
  Age: 62 Year
  Sex: Male

DRUGS (1)
  1. NOVOLOG MIX 70/30 [Suspect]
     Active Substance: INSULIN ASPART
     Indication: DIABETES MELLITUS
     Dosage: 30 U, QD
     Route: 058
     Dates: start: 2000, end: 201307

REACTIONS (6)
  - Adverse drug reaction [Unknown]
  - Glaucoma [Unknown]
  - Weight increased [Unknown]
  - Insulin resistant diabetes [Unknown]
  - Foot amputation [Unknown]
  - Diabetes mellitus [Unknown]

NARRATIVE: CASE EVENT DATE: 2000
